FAERS Safety Report 14909292 (Version 1)
Quarter: 2018Q2

REPORT INFORMATION
  Report Type: Spontaneous
  Country: ES (occurrence: ES)
  Receive Date: 20180517
  Receipt Date: 20180517
  Transmission Date: 20180711
  Serious: Yes (Other)
  Sender: FDA-Public Use
  Company Number: ES-JNJFOC-20180514285

PATIENT

DRUGS (3)
  1. SOFOSBUVIR [Suspect]
     Active Substance: SOFOSBUVIR
     Indication: CHRONIC HEPATITIS C
     Route: 065
  2. SIMEPREVIR [Suspect]
     Active Substance: SIMEPREVIR
     Indication: CHRONIC HEPATITIS C
     Dosage: FOR 12 OR 24 WEEKS
     Route: 065
  3. RIBAVIRIN. [Suspect]
     Active Substance: RIBAVIRIN
     Indication: CHRONIC HEPATITIS C
     Dosage: 1000 TO 1200 MG PER DAY
     Route: 065

REACTIONS (18)
  - Diarrhoea [Unknown]
  - Insomnia [Unknown]
  - Headache [Unknown]
  - Leukopenia [Unknown]
  - Jaundice [Unknown]
  - Anaemia [Unknown]
  - Pruritus [Unknown]
  - Rash [Unknown]
  - Hyperbilirubinaemia [Unknown]
  - Hyperuricaemia [Unknown]
  - Musculoskeletal pain [Unknown]
  - Remission not achieved [Unknown]
  - Nausea [Unknown]
  - Off label use [Unknown]
  - Thrombocytopenia [Unknown]
  - Asthenia [Unknown]
  - Adverse drug reaction [Unknown]
  - Product use issue [Unknown]
